FAERS Safety Report 5509615-0 (Version None)
Quarter: 2007Q4

REPORT INFORMATION
  Report Type: 
  Country: None (occurrence: None)
  Receive Date: 20071107
  Receipt Date: 20071107
  Transmission Date: 20080405
  Serious: Yes (Life-Threatening, Other)
  Sender: FDA-Public Use
  Company Number: None

PATIENT
  Sex: Female
  Weight: 68.0396 kg

DRUGS (2)
  1. CHANTIX [Suspect]
     Indication: CONDITION AGGRAVATED
     Dosage: 0.5 MG DAY 1-3  1 TAB  4-7 0.5 2X DAY   7TH DAY 1MG 2 X DAY
  2. CHANTIX [Suspect]
     Indication: SMOKING CESSATION THERAPY
     Dosage: 0.5 MG DAY 1-3  1 TAB  4-7 0.5 2X DAY   7TH DAY 1MG 2 X DAY

REACTIONS (12)
  - ABNORMAL DREAMS [None]
  - ANOREXIA [None]
  - ASTHENIA [None]
  - CONDITION AGGRAVATED [None]
  - FEELING ABNORMAL [None]
  - HEADACHE [None]
  - INSOMNIA [None]
  - NAUSEA [None]
  - NEGLECT OF PERSONAL APPEARANCE [None]
  - NIGHTMARE [None]
  - STARING [None]
  - TREMOR [None]
